FAERS Safety Report 25106277 (Version 1)
Quarter: 2025Q1

REPORT INFORMATION
  Report Type: Spontaneous
  Country: JP (occurrence: JP)
  Receive Date: 20250321
  Receipt Date: 20250321
  Transmission Date: 20250409
  Serious: No
  Sender: ELI LILLY AND COMPANY
  Company Number: JP-ELI_LILLY_AND_COMPANY-JP202502021361

PATIENT
  Age: 65 Year
  Sex: Female

DRUGS (7)
  1. TADALAFIL [Suspect]
     Active Substance: TADALAFIL
     Indication: Pulmonary arterial hypertension
     Route: 048
     Dates: start: 20250123
  2. UPTRAVI [Suspect]
     Active Substance: SELEXIPAG
     Indication: Pulmonary arterial hypertension
     Dosage: 0.4 MG, DAILY
     Route: 048
     Dates: start: 20240731, end: 20240802
  3. UPTRAVI [Suspect]
     Active Substance: SELEXIPAG
     Dosage: 0.4 MG, DAILY
     Route: 048
     Dates: start: 20240813, end: 20240821
  4. UPTRAVI [Suspect]
     Active Substance: SELEXIPAG
     Dosage: 0.4 MG, BID
     Route: 048
     Dates: start: 20240822, end: 20241009
  5. UPTRAVI [Suspect]
     Active Substance: SELEXIPAG
     Dosage: 0.6 MG, BID
     Route: 048
     Dates: start: 20241010
  6. OPSUMIT [Concomitant]
     Active Substance: MACITENTAN
     Indication: Pulmonary arterial hypertension
     Route: 048
     Dates: start: 20241106
  7. EDOXABAN TOSYLATE [Concomitant]
     Active Substance: EDOXABAN TOSYLATE
     Dates: start: 20241005

REACTIONS (24)
  - Somnolence [Unknown]
  - Pollakiuria [Unknown]
  - Temporomandibular pain and dysfunction syndrome [Unknown]
  - Gastrointestinal motility disorder [Recovered/Resolved]
  - Constipation [Unknown]
  - Proctalgia [Recovered/Resolved]
  - Pain [Recovered/Resolved]
  - Photopsia [Recovering/Resolving]
  - Intentional dose omission [Recovered/Resolved]
  - Arthralgia [Unknown]
  - Neck pain [Unknown]
  - Abdominal distension [Unknown]
  - Iron deficiency anaemia [Not Recovered/Not Resolved]
  - Head discomfort [Recovering/Resolving]
  - Myalgia [Unknown]
  - Headache [Unknown]
  - Eye pain [Unknown]
  - Palpitations [Recovered/Resolved]
  - Malaise [Not Recovered/Not Resolved]
  - Limb discomfort [Not Recovered/Not Resolved]
  - Abdominal pain [Not Recovered/Not Resolved]
  - Dizziness [Recovering/Resolving]
  - Vomiting [Recovered/Resolved]
  - Diarrhoea [Not Recovered/Not Resolved]

NARRATIVE: CASE EVENT DATE: 20240101
